FAERS Safety Report 12864548 (Version 2)
Quarter: 2016Q4

REPORT INFORMATION
  Report Type: Spontaneous
  Country: FR (occurrence: FR)
  Receive Date: 20161020
  Receipt Date: 20161028
  Transmission Date: 20170207
  Serious: Yes (Other)
  Sender: FDA-Public Use
  Company Number: FR-009507513-1610FRA008289

PATIENT
  Age: 58 Year
  Sex: Male

DRUGS (1)
  1. VELMETIA [Suspect]
     Active Substance: METFORMIN\SITAGLIPTIN
     Indication: DIABETES MELLITUS
     Dosage: 1 TABLET, BID (2/DAY)
     Route: 048
     Dates: start: 20160531, end: 20160605

REACTIONS (6)
  - Lymphopenia [Unknown]
  - Malaise [Unknown]
  - Fall [Unknown]
  - Thrombocytopenia [Recovered/Resolved]
  - Feeling cold [Unknown]
  - Pyrexia [Recovered/Resolved]

NARRATIVE: CASE EVENT DATE: 20160604
